FAERS Safety Report 5690579-4 (Version None)
Quarter: 2008Q1

REPORT INFORMATION
  Report Type: 
  Country: None (occurrence: None)
  Receive Date: 20080331
  Receipt Date: 20080331
  Transmission Date: 20080703
  Serious: Yes (Disabling)
  Sender: FDA-Public Use
  Company Number: None

PATIENT
  Age: 75 Year
  Sex: Male
  Weight: 52 kg

DRUGS (1)
  1. FORADIL [Suspect]
     Indication: CHRONIC OBSTRUCTIVE PULMONARY DISEASE
     Dosage: 1 PUFF TWICE DAILY INHAL
     Route: 055
     Dates: start: 20030801, end: 20080301

REACTIONS (2)
  - DRUG DOSE OMISSION [None]
  - PHARMACEUTICAL PRODUCT COMPLAINT [None]
